FAERS Safety Report 21414211 (Version 2)
Quarter: 2022Q4

REPORT INFORMATION
  Report Type: Spontaneous
  Country: US (occurrence: US)
  Receive Date: 20221006
  Receipt Date: 20221014
  Transmission Date: 20230113
  Serious: No
  Sender: FDA-Public Use
  Company Number: US-GLAXOSMITHKLINE-US2022141277

PATIENT
  Age: 60 Year
  Sex: Female

DRUGS (1)
  1. ZEJULA [Suspect]
     Active Substance: NIRAPARIB
     Indication: Ovarian cancer
     Dosage: 200 MG, QD
     Dates: start: 20220914

REACTIONS (7)
  - Headache [Unknown]
  - Insomnia [Unknown]
  - Anxiety [Unknown]
  - Influenza like illness [Unknown]
  - Fatigue [Unknown]
  - Blood pressure increased [Unknown]
  - Product dose omission issue [Unknown]

NARRATIVE: CASE EVENT DATE: 20221006
